FAERS Safety Report 8064419-2 (Version None)
Quarter: 2012Q1

REPORT INFORMATION
  Report Type: 
  Country: None (occurrence: None)
  Receive Date: 20120123
  Receipt Date: 20120113
  Transmission Date: 20120608
  Serious: Yes (Hospitalization, Other)
  Sender: FDA-Public Use
  Company Number: US-CELGENEUS-163-21880-12010600

PATIENT
  Sex: Male

DRUGS (1)
  1. REVLIMID [Suspect]
     Indication: MULTIPLE MYELOMA
     Dosage: 25 MILLIGRAM
     Route: 048
     Dates: start: 20111214

REACTIONS (10)
  - FEELING COLD [None]
  - FATIGUE [None]
  - ANAEMIA [None]
  - PYREXIA [None]
  - MYOCARDIAL INFARCTION [None]
  - VOLUME BLOOD DECREASED [None]
  - GENITAL DISCOMFORT [None]
  - NIGHT SWEATS [None]
  - ASTHENIA [None]
  - DYSURIA [None]
